FAERS Safety Report 23259749 (Version 2)
Quarter: 2024Q1

REPORT INFORMATION
  Report Type: Spontaneous
  Country: US (occurrence: US)
  Receive Date: 20231204
  Receipt Date: 20240206
  Transmission Date: 20240410
  Serious: No
  Sender: FDA-Public Use
  Company Number: US-Covis Pharma GmbH-2023COV01824

PATIENT
  Age: 83 Year
  Sex: Female

DRUGS (1)
  1. FERAHEME [Suspect]
     Active Substance: FERUMOXYTOL NON-STOICHIOMETRIC MAGNETITE
     Indication: Iron deficiency anaemia
     Route: 042
     Dates: start: 2023, end: 2023

REACTIONS (15)
  - Feeling abnormal [Not Recovered/Not Resolved]
  - Faeces discoloured [Recovered/Resolved]
  - Vertigo [Unknown]
  - Dry mouth [Unknown]
  - Speech disorder [Unknown]
  - Asthenia [Recovering/Resolving]
  - Metamorphopsia [Not Recovered/Not Resolved]
  - Cognitive disorder [Not Recovered/Not Resolved]
  - Vision blurred [Not Recovered/Not Resolved]
  - Abdominal discomfort [Unknown]
  - Headache [Not Recovered/Not Resolved]
  - Dizziness [Not Recovered/Not Resolved]
  - Fatigue [Not Recovered/Not Resolved]
  - Hypotension [Not Recovered/Not Resolved]
  - Hypertension [Not Recovered/Not Resolved]
